FAERS Safety Report 4410015-5 (Version None)
Quarter: 2004Q3

REPORT INFORMATION
  Report Type: 
  Country: None (occurrence: None)
  Receive Date: 20040726
  Receipt Date: 20040716
  Transmission Date: 20050211
  Serious: Yes (Life-Threatening)
  Sender: FDA-Public Use
  Company Number: MAG-2004-0000282

PATIENT
  Sex: Female

DRUGS (1)
  1. POVIDONE IODINE [Suspect]

REACTIONS (2)
  - ANGIONEUROTIC OEDEMA [None]
  - SKIN TEST POSITIVE [None]
